FAERS Safety Report 8846024 (Version 2)
Quarter: 2012Q4

REPORT INFORMATION
  Report Type: 
  Country: US (occurrence: US)
  Receive Date: 20121017
  Receipt Date: 20121023
  Transmission Date: 20130627
  Serious: No
  Sender: FDA-Public Use
  Company Number: US-VERTEX PHARMACEUTICAL INC.-2012-022692

PATIENT
  Sex: Male

DRUGS (5)
  1. VX-950 [Suspect]
     Indication: HEPATITIS C
     Dosage: 750 mg, tid
     Route: 048
     Dates: start: 20120917
  2. PEGINTRON                          /01543001/ [Concomitant]
     Indication: HEPATITIS C
     Dosage: 150 ?g, UNK
     Route: 058
     Dates: start: 20120917
  3. RIBASPHERE [Concomitant]
     Indication: HEPATITIS C
     Dosage: 600 mg, bid
     Route: 048
     Dates: start: 20120917
  4. AMBIEN [Concomitant]
     Dosage: 10 mg, qd
     Route: 048
  5. CLONAZEPAM [Concomitant]
     Dosage: 0.5 mg, qd
     Route: 048

REACTIONS (3)
  - Adverse event [Unknown]
  - Nipple pain [Unknown]
  - Pruritus generalised [Unknown]
